FAERS Safety Report 16399521 (Version 1)
Quarter: 2019Q2

REPORT INFORMATION
  Report Type: Spontaneous
  Country: US (occurrence: US)
  Receive Date: 20190606
  Receipt Date: 20190606
  Transmission Date: 20190711
  Serious: Yes (Other)
  Sender: FDA-Public Use
  Company Number: US-TORRENT-00008850

PATIENT
  Age: 36 Year
  Sex: Male
  Weight: 86 kg

DRUGS (1)
  1. LACTULOSE SOLUTION USP [Suspect]
     Active Substance: LACTULOSE
     Indication: FUNCTIONAL GASTROINTESTINAL DISORDER
     Dosage: SOLUTION
     Dates: start: 20190518

REACTIONS (4)
  - Product contamination microbial [Unknown]
  - Cough [Unknown]
  - Immunodeficiency [Unknown]
  - Disability [Unknown]

NARRATIVE: CASE EVENT DATE: 201905
